FAERS Safety Report 13678845 (Version 1)
Quarter: 2017Q2

REPORT INFORMATION
  Report Type: Spontaneous
  Country: IT (occurrence: IT)
  Receive Date: 20170622
  Receipt Date: 20170622
  Transmission Date: 20170830
  Serious: Yes (Hospitalization, Other)
  Sender: FDA-Public Use
  Company Number: IT-BRISTOL-MYERS SQUIBB COMPANY-BMS-2017-053963

PATIENT
  Age: 69 Year
  Sex: Male
  Weight: 69 kg

DRUGS (1)
  1. OPDIVO [Suspect]
     Active Substance: NIVOLUMAB
     Indication: LUNG NEOPLASM MALIGNANT
     Dosage: 200 MG, QCYCLE
     Route: 042
     Dates: start: 20170302, end: 20170406

REACTIONS (2)
  - Respiratory failure [Recovered/Resolved with Sequelae]
  - Leukocytosis [Recovered/Resolved with Sequelae]

NARRATIVE: CASE EVENT DATE: 20170418
